FAERS Safety Report 17739592 (Version 1)
Quarter: 2020Q2

REPORT INFORMATION
  Report Type: Spontaneous
  Country: US (occurrence: US)
  Receive Date: 20200502
  Receipt Date: 20200502
  Transmission Date: 20200714
  Serious: Yes (Disabling)
  Sender: FDA-Public Use
  Company Number: None

PATIENT
  Age: 38 Year
  Sex: Female
  Weight: 101.25 kg

DRUGS (11)
  1. ETHOSUXIMIDE. [Concomitant]
     Active Substance: ETHOSUXIMIDE
  2. ELETRIPTAN. [Concomitant]
     Active Substance: ELETRIPTAN
  3. FEMYNOR [Concomitant]
     Active Substance: ETHINYL ESTRADIOL\NORGESTIMATE
  4. NARATRIPTAN [Concomitant]
     Active Substance: NARATRIPTAN HYDROCHLORIDE
  5. AIMOVIG [Suspect]
     Active Substance: ERENUMAB-AOOE
     Indication: MIGRAINE PROPHYLAXIS
     Dosage: ?          QUANTITY:1 INJECTION(S);OTHER FREQUENCY:1X PER MONTH;?
     Route: 058
     Dates: start: 20190809, end: 20200103
  6. ZONISAMIDE. [Concomitant]
     Active Substance: ZONISAMIDE
  7. FLUOXETINE [Concomitant]
     Active Substance: FLUOXETINE HYDROCHLORIDE
  8. ADDERALL [Concomitant]
     Active Substance: AMPHETAMINE ASPARTATE\AMPHETAMINE SULFATE\DEXTROAMPHETAMINE SACCHARATE\DEXTROAMPHETAMINE SULFATE
  9. ALPRAZOLAM. [Concomitant]
     Active Substance: ALPRAZOLAM
  10. B12 INJECTIONS [Concomitant]
  11. TOPIRAMATE. [Concomitant]
     Active Substance: TOPIRAMATE

REACTIONS (15)
  - Fatigue [None]
  - Memory impairment [None]
  - Sinusitis [None]
  - Mobility decreased [None]
  - Chills [None]
  - Depressed level of consciousness [None]
  - Dizziness [None]
  - Palpitations [None]
  - Pain [None]
  - Dyspnoea [None]
  - Chest discomfort [None]
  - Upper respiratory tract infection [None]
  - Ear infection [None]
  - Loss of personal independence in daily activities [None]
  - Muscular weakness [None]
